FAERS Safety Report 4421390-X (Version None)
Quarter: 2004Q3

REPORT INFORMATION
  Report Type: 
  Country: None (occurrence: None)
  Receive Date: 20040719
  Receipt Date: 20040528
  Transmission Date: 20050211
  Serious: No
  Sender: FDA-Public Use
  Company Number: 2004217000US

PATIENT
  Age: 71 Year
  Sex: Female

DRUGS (4)
  1. INSPRA [Suspect]
     Indication: HYPERTENSION
     Dates: start: 20040324, end: 20040511
  2. NORVASC [Concomitant]
  3. ACCUPRIL [Concomitant]
  4. ATACAND [Concomitant]

REACTIONS (4)
  - BLOOD PRESSURE INCREASED [None]
  - HEADACHE [None]
  - PAIN [None]
  - VISUAL ACUITY REDUCED [None]
